FAERS Safety Report 7799275-0 (Version None)
Quarter: 2011Q4

REPORT INFORMATION
  Report Type: 
  Country: None (occurrence: None)
  Receive Date: 20111006
  Receipt Date: 20110927
  Transmission Date: 20120403
  Serious: Yes (Death)
  Sender: FDA-Public Use
  Company Number: PT-BAXTER-2011BH030398

PATIENT
  Age: 46 Year
  Sex: Female

DRUGS (7)
  1. EXTRANEAL [Suspect]
     Indication: PERITONEAL DIALYSIS
     Route: 033
     Dates: start: 20090518
  2. PS PRODUCT NOT LISTED [Concomitant]
     Indication: DIABETES MELLITUS MANAGEMENT
     Route: 048
  3. EXTRANEAL [Suspect]
     Indication: VASCULAR ACCESS COMPLICATION
     Route: 033
     Dates: start: 20090518
  4. PHYSIOSOL IN PLASTIC CONTAINER [Suspect]
     Indication: PERITONEAL DIALYSIS
     Route: 033
     Dates: start: 20090518
  5. PHYSIOSOL IN PLASTIC CONTAINER [Suspect]
     Indication: VASCULAR ACCESS COMPLICATION
     Route: 033
     Dates: start: 20090518
  6. EXTRANEAL [Suspect]
     Indication: KIDNEY TRANSPLANT REJECTION
     Route: 033
     Dates: start: 20090518
  7. PHYSIOSOL IN PLASTIC CONTAINER [Suspect]
     Indication: KIDNEY TRANSPLANT REJECTION
     Route: 033
     Dates: start: 20090518

REACTIONS (1)
  - ACUTE MYOCARDIAL INFARCTION [None]
